FAERS Safety Report 6836946-4 (Version None)
Quarter: 2010Q3

REPORT INFORMATION
  Report Type: 
  Country: None (occurrence: None)
  Receive Date: 20100713
  Receipt Date: 20070426
  Transmission Date: 20110219
  Serious: No
  Sender: FDA-Public Use
  Company Number: US-PFIZER INC-2007035307

PATIENT
  Sex: Male
  Weight: 64.41 kg

DRUGS (6)
  1. CHANTIX [Suspect]
     Indication: SMOKING CESSATION THERAPY
     Dates: start: 20070401, end: 20070401
  2. AMOXICILLIN [Concomitant]
     Indication: INFECTION
  3. KLONOPIN [Concomitant]
     Indication: NERVOUS SYSTEM DISORDER
  4. VISTARIL [Concomitant]
     Indication: NERVOUS SYSTEM DISORDER
  5. DONNATAL [Concomitant]
     Indication: GASTRIC ULCER
  6. SUCRALFATE [Concomitant]
     Indication: GASTRIC ULCER

REACTIONS (1)
  - VOMITING [None]
